FAERS Safety Report 18013412 (Version 1)
Quarter: 2020Q3

REPORT INFORMATION
  Report Type: Spontaneous
  Country: US (occurrence: US)
  Receive Date: 20200710
  Receipt Date: 20200710
  Transmission Date: 20201103
  Serious: No
  Sender: FDA-Public Use
  Company Number: None

PATIENT
  Age: 73 Year
  Sex: Male

DRUGS (11)
  1. LOSARTAN POTASSIUM. [Concomitant]
     Active Substance: LOSARTAN POTASSIUM
  2. PREDNISONE. [Concomitant]
     Active Substance: PREDNISONE
  3. VICTOZA [Concomitant]
     Active Substance: LIRAGLUTIDE
  4. ASPIRIN EC [Concomitant]
     Active Substance: ASPIRIN
  5. DEPO?PROVERA [Concomitant]
     Active Substance: MEDROXYPROGESTERONE ACETATE
  6. METFORMIN HCI [Concomitant]
     Active Substance: METFORMIN HYDROCHLORIDE
  7. ATORVASTATIN CALCIUM. [Concomitant]
     Active Substance: ATORVASTATIN CALCIUM
  8. GLIPIZIDE. [Concomitant]
     Active Substance: GLIPIZIDE
  9. LUPRON [Concomitant]
     Active Substance: LEUPROLIDE ACETATE
  10. ZYTIGA [Suspect]
     Active Substance: ABIRATERONE ACETATE
     Indication: PROSTATE CANCER
     Route: 048
     Dates: start: 20190930
  11. VITAMIN D [Concomitant]
     Active Substance: VITAMIN D NOS

REACTIONS (1)
  - Fatigue [None]

NARRATIVE: CASE EVENT DATE: 20190930
